FAERS Safety Report 12840148 (Version 1)
Quarter: 2016Q4

REPORT INFORMATION
  Report Type: Spontaneous
  Country: US (occurrence: US)
  Receive Date: 20161012
  Receipt Date: 20161012
  Transmission Date: 20170207
  Serious: Yes (Disabling)
  Sender: FDA-Public Use
  Company Number: None

PATIENT
  Age: 55 Year
  Sex: Female
  Weight: 56.7 kg

DRUGS (3)
  1. ATOVAQUONE. [Concomitant]
     Active Substance: ATOVAQUONE
  2. CIPROFLAXIN HCL [Suspect]
     Active Substance: CIPROFLOXACIN
     Indication: BABESIOSIS
     Dosage: ?          QUANTITY:1 TABLET, 2 TIMES A DAY;?
     Dates: start: 20150915, end: 20150919
  3. AZITHROMYCIN ANHYDROUS. [Concomitant]
     Active Substance: AZITHROMYCIN ANHYDROUS

REACTIONS (5)
  - Activities of daily living impaired [None]
  - Gait disturbance [None]
  - Tendon pain [None]
  - Frustration tolerance decreased [None]
  - Impaired work ability [None]

NARRATIVE: CASE EVENT DATE: 20160915
